FAERS Safety Report 6876044-7 (Version None)
Quarter: 2010Q3

REPORT INFORMATION
  Report Type: 
  Country: None (occurrence: None)
  Receive Date: 20100727
  Receipt Date: 20100722
  Transmission Date: 20110219
  Serious: Yes (Other)
  Sender: FDA-Public Use
  Company Number: ES-MERCK-1007ESP00034

PATIENT
  Age: 39 Year
  Sex: Female

DRUGS (8)
  1. ZETIA [Suspect]
     Route: 048
     Dates: start: 20090804
  2. ALPRAZOLAM [Suspect]
     Route: 048
     Dates: start: 20091113
  3. ROSUVASTATIN CALCIUM [Suspect]
     Route: 048
     Dates: start: 20091109
  4. CLOPIDOGREL BISULFATE [Suspect]
     Route: 048
     Dates: start: 20091109
  5. OMEPRAZOLE [Suspect]
     Route: 048
     Dates: start: 20091002
  6. TORSEMIDE [Suspect]
     Route: 048
     Dates: start: 20090804
  7. ATENOLOL [Concomitant]
     Route: 048
     Dates: start: 20050101
  8. ASPIRIN [Concomitant]
     Route: 048
     Dates: start: 20050101

REACTIONS (1)
  - HYPERGLYCAEMIA [None]
